FAERS Safety Report 8045157-9 (Version None)
Quarter: 2012Q1

REPORT INFORMATION
  Report Type: 
  Country: None (occurrence: None)
  Receive Date: 20120113
  Receipt Date: 20110802
  Transmission Date: 20120608
  Serious: Yes (Hospitalization)
  Sender: FDA-Public Use
  Company Number: US-ASTRAZENECA-2011SE20332

PATIENT
  Age: 19475 Day
  Sex: Female
  Weight: 59 kg

DRUGS (3)
  1. SEROQUEL [Suspect]
     Indication: BIPOLAR I DISORDER
     Route: 048
  2. SEROQUEL [Suspect]
     Route: 048
  3. SYMBALTA [Concomitant]

REACTIONS (3)
  - DRUG DOSE OMISSION [None]
  - MALAISE [None]
  - HALLUCINATION [None]
